FAERS Safety Report 23334713 (Version 2)
Quarter: 2023Q4

REPORT INFORMATION
  Report Type: Other
  Country: US (occurrence: US)
  Receive Date: 20231224
  Receipt Date: 20231224
  Transmission Date: 20240110
  Serious: No
  Sender: FDA-Public Use
  Company Number: US-TRAVERE-2023TVT00813

PATIENT
  Sex: Female
  Weight: 90.72 kg

DRUGS (7)
  1. FILSPARI [Suspect]
     Active Substance: SPARSENTAN
     Indication: IgA nephropathy
     Route: 048
     Dates: start: 20231013
  2. LASIX [Concomitant]
     Active Substance: FUROSEMIDE
  3. GOSERELIN [Concomitant]
     Active Substance: GOSERELIN
  4. ARIMIDEX [Concomitant]
     Active Substance: ANASTROZOLE
  5. LOVAZA [Concomitant]
     Active Substance: OMEGA-3-ACID ETHYL ESTERS
  6. VITAMINS [Concomitant]
     Active Substance: VITAMINS
  7. TORSEMIDE [Concomitant]
     Active Substance: TORSEMIDE

REACTIONS (3)
  - Dyspepsia [None]
  - Fluid retention [None]
  - Tendonitis [None]
